FAERS Safety Report 20979927 (Version 1)
Quarter: 2022Q2

REPORT INFORMATION
  Report Type: Spontaneous
  Country: US (occurrence: US)
  Receive Date: 20220620
  Receipt Date: 20220620
  Transmission Date: 20220721
  Serious: No
  Sender: FDA-Public Use
  Company Number: US-CURIUM-2022000235

PATIENT

DRUGS (2)
  1. TECHNESCAN PYP [Suspect]
     Active Substance: TECHNETIUM TC-99M PYROPHOSPHATE
     Indication: Multiple gated acquisition scan
     Route: 065
  2. TECHNETIUM TC-99M SODIUM PERTECHNETATE [Suspect]
     Active Substance: TECHNETIUM TC-99M SODIUM PERTECHNETATE
     Indication: Multiple gated acquisition scan
     Route: 065

REACTIONS (1)
  - Multiple gated acquisition scan abnormal [Recovered/Resolved]
